FAERS Safety Report 21789285 (Version 1)
Quarter: 2022Q4

REPORT INFORMATION
  Report Type: Spontaneous
  Country: US (occurrence: US)
  Receive Date: 20221228
  Receipt Date: 20221228
  Transmission Date: 20230113
  Serious: Yes (Hospitalization)
  Sender: FDA-Public Use
  Company Number: US-DENDREON PHARMACEUTICAL LLC-2022DEN000383

PATIENT

DRUGS (14)
  1. PROVENGE [Suspect]
     Active Substance: SIPULEUCEL-T
     Indication: Prostate cancer metastatic
     Dosage: DOSE 1
     Route: 042
     Dates: start: 20221208, end: 20221208
  2. PROVENGE [Suspect]
     Active Substance: SIPULEUCEL-T
     Dosage: DOSE 2
     Route: 042
     Dates: start: 20221215, end: 20221215
  3. ELIGARD [Concomitant]
     Active Substance: LEUPROLIDE ACETATE
  4. COREG [Concomitant]
     Active Substance: CARVEDILOL
  5. VASOTEC [Concomitant]
     Active Substance: ENALAPRIL MALEATE
  6. PROCARDIA [Concomitant]
     Active Substance: NIFEDIPINE
  7. XANAX [Concomitant]
     Active Substance: ALPRAZOLAM
  8. FOSAMAX [Concomitant]
     Active Substance: ALENDRONATE SODIUM
  9. GABAPENTIN [Concomitant]
     Active Substance: GABAPENTIN
  10. VRAYLAR [Concomitant]
     Active Substance: CARIPRAZINE
  11. NORTRIPTYLINE [Concomitant]
     Active Substance: NORTRIPTYLINE
  12. XGEVA [Concomitant]
     Active Substance: DENOSUMAB
  13. HYDROXYZINE [Concomitant]
     Active Substance: HYDROXYZINE HYDROCHLORIDE
  14. IRON [Concomitant]
     Active Substance: IRON

REACTIONS (6)
  - Fall [Recovered/Resolved]
  - Craniocerebral injury [Recovering/Resolving]
  - Orthostatic hypotension [Recovering/Resolving]
  - Hypertension [Recovering/Resolving]
  - Skin abrasion [Unknown]
  - Dizziness [Recovered/Resolved]

NARRATIVE: CASE EVENT DATE: 20221218
